FAERS Safety Report 6456607-3 (Version None)
Quarter: 2009Q4

REPORT INFORMATION
  Report Type: 
  Country: None (occurrence: None)
  Receive Date: 20091125
  Receipt Date: 20091116
  Transmission Date: 20100525
  Serious: Yes (Other)
  Sender: FDA-Public Use
  Company Number: DE-ASTRAZENECA-2009SE27307

PATIENT
  Age: 72 Year
  Sex: Female

DRUGS (11)
  1. SEROQUEL [Suspect]
     Route: 048
     Dates: start: 20090911, end: 20090913
  2. LORAZEPAM [Concomitant]
     Route: 048
     Dates: start: 20090908, end: 20090910
  3. LORAZEPAM [Concomitant]
     Route: 048
     Dates: start: 20090911, end: 20090913
  4. NORVASC [Concomitant]
     Route: 048
  5. ASPIRIN [Concomitant]
     Route: 048
  6. DELIX [Concomitant]
     Route: 048
  7. L-THYROXIN [Concomitant]
     Route: 048
  8. KEPPRA [Concomitant]
     Route: 048
  9. SIMVASTATIN [Concomitant]
     Route: 048
  10. KALINOR [Concomitant]
     Route: 048
  11. LAXOBERAL [Concomitant]
     Dosage: 15 DROPS
     Route: 048

REACTIONS (4)
  - CEREBRAL HAEMORRHAGE [None]
  - CEREBRAL VENOUS THROMBOSIS [None]
  - CONVULSION [None]
  - STATUS EPILEPTICUS [None]
